FAERS Safety Report 20780727 (Version 1)
Quarter: 2022Q2

REPORT INFORMATION
  Report Type: Spontaneous
  Country: US (occurrence: US)
  Receive Date: 20220504
  Receipt Date: 20220504
  Transmission Date: 20220721
  Serious: Yes (Other)
  Sender: FDA-Public Use
  Company Number: US-STRIDES ARCOLAB LIMITED-2022SP004669

PATIENT
  Age: 9 Year
  Sex: Female

DRUGS (2)
  1. ETHOSUXIMIDE [Suspect]
     Active Substance: ETHOSUXIMIDE
     Indication: Seizure
     Dosage: UNK
     Route: 065
  2. ETHOSUXIMIDE [Suspect]
     Active Substance: ETHOSUXIMIDE
     Indication: Drug therapy

REACTIONS (1)
  - Drug-induced liver injury [Recovered/Resolved]
